FAERS Safety Report 4444408-7 (Version None)
Quarter: 2004Q3

REPORT INFORMATION
  Report Type: 
  Country: None (occurrence: None)
  Receive Date: 20040902
  Receipt Date: 20040817
  Transmission Date: 20050211
  Serious: Yes (Hospitalization)
  Sender: FDA-Public Use
  Company Number: 156934

PATIENT
  Age: 46 Year
  Sex: Male
  Weight: 68.0396 kg

DRUGS (10)
  1. AVONEX [Suspect]
     Indication: MULTIPLE SCLEROSIS
     Dosage: 30 MCG BIW IM
     Route: 030
     Dates: start: 19980101, end: 20011013
  2. AVONEX [Suspect]
     Indication: MULTIPLE SCLEROSIS
     Dosage: 15 MCG BIW IM
     Route: 030
     Dates: start: 20011201
  3. ZANAFLEX [Concomitant]
  4. BACLOFEN [Concomitant]
  5. RITALIN [Concomitant]
  6. SYNTHROID [Concomitant]
  7. PROZAC [Concomitant]
  8. FOSAMAX [Concomitant]
  9. CITRICAL [Concomitant]
  10. LEVBID [Concomitant]

REACTIONS (8)
  - FATIGUE [None]
  - INJECTION SITE ABSCESS [None]
  - MUSCLE ABSCESS [None]
  - MUSCLE NECROSIS [None]
  - MYOSITIS [None]
  - SKIN OEDEMA [None]
  - STAPHYLOCOCCAL ABSCESS [None]
  - URINARY TRACT INFECTION [None]
